FAERS Safety Report 4788188-4 (Version None)
Quarter: 2005Q3

REPORT INFORMATION
  Report Type: 
  Country: None (occurrence: None)
  Receive Date: 20050920
  Receipt Date: 20050106
  Transmission Date: 20060218
  Serious: Yes (Other)
  Sender: FDA-Public Use
  Company Number: PHEH2005US00586

PATIENT
  Age: 71 Year
  Sex: Female
  Weight: 76.2 kg

DRUGS (7)
  1. DIOVAN [Suspect]
     Indication: HYPERTENSION
     Dosage: 80 MG, QD; 160 MG, QD
     Dates: start: 20040101, end: 20040101
  2. DIOVAN [Suspect]
     Indication: HYPERTENSION
     Dosage: 80 MG, QD; 160 MG, QD
     Dates: start: 20040101, end: 20040101
  3. TOPROL-XL [Suspect]
     Indication: HYPERTENSION
     Dosage: 80 MG, QD
     Dates: start: 20040101, end: 20040101
  4. NORVASC [Suspect]
  5. WELLBUTRIN [Concomitant]
  6. LIPITOR [Concomitant]
  7. SYNTHROID [Concomitant]

REACTIONS (5)
  - APHASIA [None]
  - BLOOD PRESSURE DECREASED [None]
  - FALL [None]
  - LOSS OF CONSCIOUSNESS [None]
  - SOMNOLENCE [None]
